FAERS Safety Report 12294733 (Version 1)
Quarter: 2016Q2

REPORT INFORMATION
  Report Type: Spontaneous
  Country: DE (occurrence: DE)
  Receive Date: 20160422
  Receipt Date: 20160422
  Transmission Date: 20160815
  Serious: Yes (Hospitalization, Other)
  Sender: FDA-Public Use
  Company Number: PHHY2016DE039043

PATIENT
  Sex: Male
  Weight: 93 kg

DRUGS (3)
  1. MYFORTIC [Suspect]
     Active Substance: MYCOPHENOLATE SODIUM
     Indication: RENAL TRANSPLANT
     Dosage: 1440 MG, QD (2X360MG MORNING) AND  (2X360MG EVENING)
     Route: 065
  2. SANDIMMUN OPTORAL [Suspect]
     Active Substance: CYCLOSPORINE
     Indication: RENAL TRANSPLANT
     Dosage: 125 MG, QD (75 MG IN THE MORNING AND 50 MG IN THE EVENING)
     Route: 065
     Dates: start: 2007
  3. MARCUMAR [Concomitant]
     Active Substance: PHENPROCOUMON
     Indication: VENOUS THROMBOSIS
     Route: 065

REACTIONS (27)
  - Intertrigo [Unknown]
  - Hypertensive heart disease [Unknown]
  - Hyponatraemia [Unknown]
  - Skin papilloma [Unknown]
  - Melanocytic naevus [Unknown]
  - Seborrhoeic keratosis [Unknown]
  - Basal cell carcinoma [Unknown]
  - Transplant dysfunction [Unknown]
  - Wrong technique in product usage process [Unknown]
  - Dermal cyst [Unknown]
  - Neoplasm skin [Unknown]
  - Hyperkalaemia [Unknown]
  - Sebaceous adenoma [Unknown]
  - Angina unstable [Unknown]
  - Folliculitis [Unknown]
  - Wound infection [Recovering/Resolving]
  - Carcinoma in situ [Unknown]
  - Coronary artery disease [Unknown]
  - Squamous cell carcinoma [Unknown]
  - Squamous cell carcinoma of skin [Unknown]
  - Actinic keratosis [Unknown]
  - Hyperkeratosis [Unknown]
  - Peripheral venous disease [Unknown]
  - Post thrombotic syndrome [Unknown]
  - Transplant rejection [Unknown]
  - Bowen^s disease [Unknown]
  - Transplant failure [Unknown]

NARRATIVE: CASE EVENT DATE: 200902
